FAERS Safety Report 16402552 (Version 1)
Quarter: 2019Q2

REPORT INFORMATION
  Report Type: Spontaneous
  Country: US (occurrence: US)
  Receive Date: 20190607
  Receipt Date: 20190607
  Transmission Date: 20190711
  Serious: No
  Sender: FDA-Public Use
  Company Number: US-MALLINCKRODT-T201802789

PATIENT
  Sex: Female

DRUGS (2)
  1. HYDROCODONE/ACETAMINOPHEN [Suspect]
     Active Substance: ACETAMINOPHEN\HYDROCODONE
     Indication: ARTHRALGIA
  2. HYDROCODONE/ACETAMINOPHEN [Suspect]
     Active Substance: ACETAMINOPHEN\HYDROCODONE
     Indication: PAIN
     Dosage: 10/325 MG 2 EVERY 6 HOURS, THREE TIMES A DAY
     Route: 048
     Dates: start: 201806

REACTIONS (14)
  - Therapeutic product effect decreased [Unknown]
  - Hypoaesthesia [Unknown]
  - Insomnia [Unknown]
  - Joint stiffness [Unknown]
  - Gait disturbance [Unknown]
  - Headache [Unknown]
  - Pain [Unknown]
  - Somnolence [Unknown]
  - Burning sensation [Unknown]
  - Disturbance in attention [Unknown]
  - Loss of personal independence in daily activities [Unknown]
  - Decreased appetite [Unknown]
  - Sensitivity to weather change [Unknown]
  - Toothache [Unknown]
